FAERS Safety Report 5715483-4 (Version None)
Quarter: 2008Q2

REPORT INFORMATION
  Report Type: 
  Country: None (occurrence: None)
  Receive Date: 20080422
  Receipt Date: 20080414
  Transmission Date: 20081010
  Serious: Yes (Hospitalization)
  Sender: FDA-Public Use
  Company Number: 026455

PATIENT
  Weight: 65.9 kg

DRUGS (2)
  1. WARFARIN SODIUM [Suspect]
     Indication: DEEP VEIN THROMBOSIS
     Dosage: 70 MG, A12H INJ.
  2. ENOXAPARIN SODIUM [Suspect]
     Indication: DEEP VEIN THROMBOSIS
     Dosage: 70 MG, A12HR INJ,

REACTIONS (4)
  - ABDOMINAL PAIN [None]
  - INTRA-ABDOMINAL HAEMORRHAGE [None]
  - MEDICATION ERROR [None]
  - WEIGHT DECREASED [None]
